FAERS Safety Report 11253947 (Version 1)
Quarter: 2015Q3

REPORT INFORMATION
  Report Type: Spontaneous
  Country: US (occurrence: US)
  Receive Date: 20150709
  Receipt Date: 20150709
  Transmission Date: 20151125
  Serious: No
  Sender: FDA-Public Use
  Company Number: US-BIOGENIDEC-2015BI094088

PATIENT
  Sex: Female

DRUGS (4)
  1. CARBAMAZEPINE. [Concomitant]
     Active Substance: CARBAMAZEPINE
     Indication: MUSCLE SPASMS
  2. ATROPINE. [Concomitant]
     Active Substance: ATROPINE
     Indication: OPTIC NERVE DISORDER
  3. AVONEX [Suspect]
     Active Substance: INTERFERON BETA-1A
     Indication: PRODUCT USED FOR UNKNOWN INDICATION
     Route: 030
     Dates: start: 2005, end: 2007
  4. OXYBUTYNIN [Concomitant]
     Active Substance: OXYBUTYNIN
     Indication: URINARY TRACT DISORDER

REACTIONS (3)
  - Wheelchair user [Not Recovered/Not Resolved]
  - Ill-defined disorder [Not Recovered/Not Resolved]
  - Gait disturbance [Not Recovered/Not Resolved]
